FAERS Safety Report 4961046-8 (Version None)
Quarter: 2006Q1

REPORT INFORMATION
  Report Type: 
  Country: None (occurrence: None)
  Receive Date: 20060328
  Receipt Date: 20060316
  Transmission Date: 20060701
  Serious: No
  Sender: FDA-Public Use
  Company Number: 06H-087-0306722-00

PATIENT
  Age: 35 Year
  Sex: Female
  Weight: 51 kg

DRUGS (9)
  1. MAGNESIUM SULFATE [Suspect]
     Indication: TOCOLYSIS
     Dosage: INTRAVENOUS
     Route: 042
  2. VECURONIUM BROMIDE [Suspect]
     Indication: MUSCLE RELAXANT THERAPY
     Dosage: 2.5 MG, INTRAVENOUS
     Route: 042
  3. THIOPENTAL SODIUM [Concomitant]
  4. SUCCINYLCHOLINE CHLORIDE [Concomitant]
  5. 60% NITROUS OXIDE (NITROUS OXIDE) [Concomitant]
  6. OXYGEN (OXYGEN) [Concomitant]
  7. FENTANYL [Concomitant]
  8. PROPOFOL [Concomitant]
  9. FENTANYL [Concomitant]

REACTIONS (4)
  - DELAYED RECOVERY FROM ANAESTHESIA [None]
  - DRUG EXPOSURE DURING PREGNANCY [None]
  - DRUG INTERACTION [None]
  - NEUROMUSCULAR BLOCK PROLONGED [None]
